FAERS Safety Report 8162358-X (Version None)
Quarter: 2012Q1

REPORT INFORMATION
  Report Type: 
  Country: None (occurrence: None)
  Receive Date: 20120224
  Receipt Date: 20120214
  Transmission Date: 20120608
  Serious: Yes (Hospitalization, Other)
  Sender: FDA-Public Use
  Company Number: DE-ELI_LILLY_AND_COMPANY-DE201202004093

PATIENT
  Age: 54 Year
  Sex: Female

DRUGS (3)
  1. FORTEO [Suspect]
     Indication: OSTEOPOROSIS
     Dosage: UNK, QD
     Route: 058
     Dates: start: 20100522
  2. DEKRISTOL [Concomitant]
  3. ANALGESICS [Concomitant]

REACTIONS (3)
  - HOSPITALISATION [None]
  - SPEECH DISORDER [None]
  - JAW OPERATION [None]
